FAERS Safety Report 13997907 (Version 1)
Quarter: 2017Q3

REPORT INFORMATION
  Report Type: Spontaneous
  Country: US (occurrence: US)
  Receive Date: 20170921
  Receipt Date: 20170921
  Transmission Date: 20171128
  Serious: Yes (Hospitalization, Other)
  Sender: FDA-Public Use
  Company Number: None

PATIENT
  Age: 73 Year
  Sex: Male
  Weight: 91.35 kg

DRUGS (2)
  1. TADALAFIL IND EXEMPT:  APPROVED PRODUCT [Suspect]
     Active Substance: TADALAFIL
     Indication: CHRONIC OBSTRUCTIVE PULMONARY DISEASE
     Route: 002
  2. TADALAFIL IND EXEMPT:  APPROVED PRODUCT [Suspect]
     Active Substance: TADALAFIL
     Indication: PULMONARY HYPERTENSION
     Route: 002

REACTIONS (2)
  - Cough [None]
  - Vitreous floaters [None]

NARRATIVE: CASE EVENT DATE: 20170810
